FAERS Safety Report 17984233 (Version 2)
Quarter: 2020Q3

REPORT INFORMATION
  Report Type: Spontaneous
  Country: US (occurrence: US)
  Receive Date: 20200706
  Receipt Date: 20200911
  Transmission Date: 20201103
  Serious: No
  Sender: FDA-Public Use
  Company Number: US-ASTRAZENECA-2020SE83318

PATIENT
  Sex: Female
  Weight: 61.2 kg

DRUGS (10)
  1. BABY ASA [Concomitant]
     Active Substance: ASPIRIN
     Indication: ANTICOAGULANT THERAPY
     Dosage: DAILY
  2. VITAMIN B12 [Concomitant]
     Active Substance: CYANOCOBALAMIN
  3. METOPROLOL TARTRATE. [Suspect]
     Active Substance: METOPROLOL TARTRATE
     Indication: BLOOD PRESSURE MEASUREMENT
     Dosage: TWO TIMES A DAY
     Route: 048
  4. FUROSIMIDE [Concomitant]
     Active Substance: FUROSEMIDE
  5. POTASSIUM [Concomitant]
     Active Substance: POTASSIUM
  6. VITAMIN D [Concomitant]
     Active Substance: VITAMIN D NOS
  7. THYROID MEDICATION [Concomitant]
     Active Substance: UNSPECIFIED INGREDIENT
  8. SYMBICORT [Suspect]
     Active Substance: BUDESONIDE\FORMOTEROL FUMARATE DIHYDRATE
     Indication: ASTHMA
     Dosage: 160/4.5 2 PUFFS,TWO TIMES A DAY SECOND INHALER
     Route: 055
     Dates: start: 20200622
  9. SYMBICORT [Suspect]
     Active Substance: BUDESONIDE\FORMOTEROL FUMARATE DIHYDRATE
     Indication: ASTHMA
     Dosage: 160/4.5 2 PUFFS,TWO TIMES A DAY END OF MAY FOR FIRST INHALER
     Route: 055
  10. METOPROLOL TARTRATE. [Suspect]
     Active Substance: METOPROLOL TARTRATE
     Indication: BLOOD PRESSURE MEASUREMENT
     Dosage: 25MG 1/2 TABLET,TWO TIMES A DAY
     Route: 048

REACTIONS (5)
  - Body height decreased [Unknown]
  - Wrong technique in product usage process [Unknown]
  - Candida infection [Unknown]
  - Dyspnoea [Unknown]
  - Device use issue [Unknown]
